FAERS Safety Report 8530848-3 (Version None)
Quarter: 2012Q3

REPORT INFORMATION
  Report Type: 
  Country: None (occurrence: None)
  Receive Date: 20120710
  Receipt Date: 20120625
  Transmission Date: 20120928
  Serious: Yes (Hospitalization)
  Sender: FDA-Public Use
  Company Number: ALK_02683_2012

PATIENT
  Age: 42 Year
  Sex: Male
  Weight: 74.3899 kg

DRUGS (3)
  1. VIVITROL [Suspect]
     Indication: ALCOHOLISM
     Dosage: (INTRAMUSCULAR)
     Route: 030
     Dates: start: 20110901
  2. MELATONIN (UNKNOWN UNTIL CONTINUING) [Concomitant]
  3. IBUPROFEN (UNKNOWN UNTIL CONTINUING) [Concomitant]

REACTIONS (13)
  - HYPOXIC-ISCHAEMIC ENCEPHALOPATHY [None]
  - CIRCULATORY COLLAPSE [None]
  - PULSELESS ELECTRICAL ACTIVITY [None]
  - LOSS OF CONSCIOUSNESS [None]
  - PNEUMONIA [None]
  - BLOOD ALCOHOL INCREASED [None]
  - SINUS BRADYCARDIA [None]
  - ANGIOEDEMA [None]
  - APALLIC SYNDROME [None]
  - DECUBITUS ULCER [None]
  - URTICARIA [None]
  - DRUG SCREEN POSITIVE [None]
  - ANAPHYLACTIC REACTION [None]
